FAERS Safety Report 11451355 (Version 1)
Quarter: 2015Q3

REPORT INFORMATION
  Report Type: Spontaneous
  Country: US (occurrence: US)
  Receive Date: 20150903
  Receipt Date: 20150903
  Transmission Date: 20151125
  Serious: No
  Sender: FDA-Public Use
  Company Number: US-ROCHE-1054428

PATIENT
  Sex: Male

DRUGS (3)
  1. BOCEPREVIR [Suspect]
     Active Substance: BOCEPREVIR
     Indication: CHRONIC HEPATITIS C
     Route: 048
     Dates: start: 20120116
  2. PEGASYS [Suspect]
     Active Substance: PEGINTERFERON ALFA-2A
     Indication: CHRONIC HEPATITIS C
     Route: 058
     Dates: start: 20111212
  3. RIBASPHERE RIBAPAK [Suspect]
     Active Substance: RIBAVIRIN
     Indication: CHRONIC HEPATITIS C
     Dosage: DIVIDED DOSES
     Route: 048

REACTIONS (10)
  - Irritability [Unknown]
  - Nausea [Unknown]
  - Muscle spasms [Unknown]
  - Mood swings [Unknown]
  - Vertigo [Unknown]
  - Fatigue [Unknown]
  - Diarrhoea [Unknown]
  - Memory impairment [Unknown]
  - Malaise [Unknown]
  - Oedema peripheral [Unknown]
